FAERS Safety Report 4717010-7 (Version None)
Quarter: 2005Q3

REPORT INFORMATION
  Report Type: 
  Country: None (occurrence: None)
  Receive Date: 20050719
  Receipt Date: 20050707
  Transmission Date: 20060218
  Serious: Yes (Hospitalization)
  Sender: FDA-Public Use
  Company Number: JP-JNJFOC-20050502768

PATIENT
  Age: 57 Year
  Sex: Female

DRUGS (7)
  1. OFLOCET [Suspect]
     Indication: MENINGITIS
     Route: 048
  2. OFLOCET [Suspect]
     Route: 048
  3. CLAFORAN [Suspect]
     Indication: DRUG USE FOR UNKNOWN INDICATION
     Route: 042
  4. GENTAMICIN [Suspect]
     Indication: DRUG USE FOR UNKNOWN INDICATION
     Route: 042
  5. CLAMOXYL [Suspect]
     Indication: DRUG USE FOR UNKNOWN INDICATION
     Route: 042
  6. ZOVIRAX [Suspect]
     Indication: DRUG USE FOR UNKNOWN INDICATION
     Route: 042
  7. ROCEPHIN [Suspect]
     Indication: DRUG USE FOR UNKNOWN INDICATION
     Dosage: ADMINISTERED ONCE ON 11-FEB-2005
     Route: 042

REACTIONS (7)
  - APHASIA [None]
  - COUGH [None]
  - HEPATIC CIRRHOSIS [None]
  - MENINGEAL DISORDER [None]
  - MUSCULOSKELETAL STIFFNESS [None]
  - PANCREATITIS ACUTE [None]
  - PYREXIA [None]
